FAERS Safety Report 8586999-0 (Version None)
Quarter: 2012Q3

REPORT INFORMATION
  Report Type: 
  Country: None (occurrence: None)
  Receive Date: 20120810
  Receipt Date: 20120628
  Transmission Date: 20120928
  Serious: No
  Sender: FDA-Public Use
  Company Number: US-ASTRAZENECA-2012SE44588

PATIENT
  Sex: Female
  Weight: 52.6 kg

DRUGS (1)
  1. NEXIUM [Suspect]
     Route: 048

REACTIONS (3)
  - VOMITING [None]
  - NAUSEA [None]
  - INTENTIONAL DRUG MISUSE [None]
